FAERS Safety Report 12920526 (Version 1)
Quarter: 2016Q4

REPORT INFORMATION
  Report Type: Spontaneous
  Country: JP (occurrence: JP)
  Receive Date: 20161108
  Receipt Date: 20161108
  Transmission Date: 20170207
  Serious: Yes (Hospitalization, Other)
  Sender: FDA-Public Use
  Company Number: PHJP2016JP031883

PATIENT

DRUGS (1)
  1. ZYKADIA [Suspect]
     Active Substance: CERITINIB
     Indication: LUNG NEOPLASM MALIGNANT
     Dosage: UNK
     Route: 048
     Dates: start: 20161024

REACTIONS (5)
  - Headache [Unknown]
  - White blood cell count increased [Unknown]
  - Sinus bradycardia [Unknown]
  - Nausea [Unknown]
  - Hyponatraemia [Unknown]
